FAERS Safety Report 15670723 (Version 1)
Quarter: 2018Q4

REPORT INFORMATION
  Report Type: Spontaneous
  Country: US (occurrence: US)
  Receive Date: 20181129
  Receipt Date: 20181129
  Transmission Date: 20190205
  Serious: No
  Sender: FDA-Public Use
  Company Number: US-PFIZER INC-2018488775

PATIENT
  Age: 55 Year
  Sex: Male
  Weight: 192.7 kg

DRUGS (2)
  1. GABAPENTIN. [Suspect]
     Active Substance: GABAPENTIN
     Indication: DIABETIC NEPHROPATHY
     Dosage: 300 MG, 2X/DAY
     Route: 048
  2. GABAPENTIN. [Suspect]
     Active Substance: GABAPENTIN
     Indication: PAIN IN EXTREMITY

REACTIONS (3)
  - Product use in unapproved indication [Unknown]
  - Drug effect incomplete [Unknown]
  - Intentional product misuse [Unknown]
